FAERS Safety Report 9385740 (Version 1)
Quarter: 2013Q3

REPORT INFORMATION
  Report Type: Spontaneous
  Country: DE (occurrence: DE)
  Receive Date: 20130705
  Receipt Date: 20130705
  Transmission Date: 20140515
  Serious: Yes (Other)
  Sender: FDA-Public Use
  Company Number: DE-SANOFI-AVENTIS-2013SA065585

PATIENT
  Age: 40 Year
  Sex: Female
  Weight: 63 kg

DRUGS (6)
  1. DOLANTINA [Suspect]
     Indication: INTERVERTEBRAL DISC PROTRUSION
     Dosage: LONG TERM EXPOSURE
     Route: 065
  2. DUROGESIC [Suspect]
     Indication: INTERVERTEBRAL DISC PROTRUSION
     Dosage: DOSE, FORM, AND FREQUENCY: 50 MG/3 DAYS, CHANGE OF PATCH EVERY 72 HOURS; STRENGTH: 50 MCG/H
     Route: 003
     Dates: start: 20070622
  3. DIPIDOLOR [Suspect]
     Indication: INTERVERTEBRAL DISC PROTRUSION
     Dosage: LONG TERM EXPOSURE
     Route: 040
  4. LYRICA [Concomitant]
     Indication: INTERVERTEBRAL DISC PROTRUSION
     Route: 048
     Dates: start: 20070622
  5. CYMBALTA [Concomitant]
     Indication: INTERVERTEBRAL DISC PROTRUSION
     Route: 048
     Dates: start: 20070622
  6. FOLSAN [Concomitant]
     Indication: PROPHYLAXIS OF NEURAL TUBE DEFECT
     Route: 048

REACTIONS (3)
  - Premature labour [Unknown]
  - Exposure during pregnancy [Unknown]
  - Premature rupture of membranes [Unknown]
